FAERS Safety Report 22367146 (Version 2)
Quarter: 2023Q2

REPORT INFORMATION
  Report Type: Spontaneous
  Country: FR (occurrence: FR)
  Receive Date: 20230525
  Receipt Date: 20230604
  Transmission Date: 20230721
  Serious: Yes (Other)
  Sender: FDA-Public Use
  Company Number: FR-TEVA-2023-FR-2889772

PATIENT
  Age: 72 Year
  Sex: Male

DRUGS (3)
  1. DOXYCYCLINE [Suspect]
     Active Substance: DOXYCYCLINE
     Indication: Folliculitis
     Dosage: 200 MILLIGRAM DAILY; ONCE DAILY
     Route: 065
  2. LAZERTINIB [Suspect]
     Active Substance: LAZERTINIB
     Indication: Lung adenocarcinoma stage IV
     Route: 065
     Dates: start: 202105
  3. AMIVANTAMAB [Suspect]
     Active Substance: AMIVANTAMAB
     Indication: Lung adenocarcinoma stage IV
     Route: 065
     Dates: start: 202105

REACTIONS (2)
  - Folliculitis [Recovered/Resolved]
  - Drug eruption [Recovered/Resolved]
